FAERS Safety Report 6663758-7 (Version None)
Quarter: 2010Q2

REPORT INFORMATION
  Report Type: 
  Country: None (occurrence: None)
  Receive Date: 20100401
  Receipt Date: 20100324
  Transmission Date: 20101027
  Serious: Yes (Hospitalization)
  Sender: FDA-Public Use
  Company Number: US-ASTRAZENECA-2010SE13102

PATIENT
  Age: 77 Year
  Sex: Female
  Weight: 62.6 kg

DRUGS (2)
  1. SYMBICORT [Suspect]
     Indication: ASTHMA
     Dosage: 640 MCG
     Route: 055
     Dates: start: 20100309
  2. SINGULAIR [Concomitant]
     Indication: ASTHMA

REACTIONS (7)
  - ABDOMINAL PAIN UPPER [None]
  - CHOLELITHIASIS [None]
  - DRY THROAT [None]
  - DYSPHONIA [None]
  - HEPATIC ENZYME INCREASED [None]
  - NERVOUSNESS [None]
  - TREMOR [None]
